FAERS Safety Report 20757023 (Version 1)
Quarter: 2022Q2

REPORT INFORMATION
  Report Type: Spontaneous
  Country: US (occurrence: None)
  Receive Date: 20220427
  Receipt Date: 20220427
  Transmission Date: 20220721
  Serious: Yes (Hospitalization)
  Sender: FDA-Public Use
  Company Number: None

PATIENT
  Age: 74 Year
  Sex: Female
  Weight: 56.6 kg

DRUGS (2)
  1. CARBOPLATIN [Suspect]
     Active Substance: CARBOPLATIN
     Dates: end: 20210813
  2. TAXOL [Suspect]
     Active Substance: PACLITAXEL
     Dates: end: 20210813

REACTIONS (10)
  - Asthenia [None]
  - Diarrhoea [None]
  - Fall [None]
  - Dehydration [None]
  - White blood cell count decreased [None]
  - Blood creatine decreased [None]
  - Cardiac disorder [None]
  - Pleural effusion [None]
  - Atelectasis [None]
  - Therapy interrupted [None]

NARRATIVE: CASE EVENT DATE: 20210820
